FAERS Safety Report 6419564-1 (Version None)
Quarter: 2009Q4

REPORT INFORMATION
  Report Type: 
  Country: None (occurrence: None)
  Receive Date: 20091027
  Receipt Date: 20091013
  Transmission Date: 20100525
  Serious: Yes (Hospitalization)
  Sender: FDA-Public Use
  Company Number: MPS1-1000271

PATIENT
  Age: 4 Year
  Sex: Female
  Weight: 14 kg

DRUGS (4)
  1. ALDURAZYME (LARONIDASE) CONCENTRATE FOR SOLUTION  INFUSION [Suspect]
     Indication: MUCOPOLYSACCHARIDOSIS I
     Dosage: 11.6 MG, QOW, UNK
     Dates: start: 20080117
  2. SALBUTAMOL (SALBUTAMOL) [Concomitant]
  3. IPRATROPIUM BROMIDE [Concomitant]
  4. BECLOMETHASONE DIPROPIONATE [Concomitant]

REACTIONS (2)
  - ASPIRATION BRONCHIAL [None]
  - LOWER RESPIRATORY TRACT INFECTION [None]
